FAERS Safety Report 8601538-3 (Version None)
Quarter: 2012Q3

REPORT INFORMATION
  Report Type: 
  Country: None (occurrence: None)
  Receive Date: 20120806
  Receipt Date: 20120806
  Transmission Date: 20120928
  Serious: Yes (Life-Threatening, Hospitalization, Other)
  Sender: FDA-Public Use
  Company Number: None

PATIENT
  Sex: Male
  Weight: 86.1834 kg

DRUGS (1)
  1. VALTURNA [Suspect]
     Indication: HYPERTENSION
     Dosage: 1 TAB DAILY ORAL BEGAN DAILY USE ABOUT OCT 26, 2010 STOPPED WHEN NOVARTIS INFORMED BY LETTER 5/17/12
     Route: 048

REACTIONS (1)
  - CONVULSION [None]
